FAERS Safety Report 13263993 (Version 1)
Quarter: 2017Q1

REPORT INFORMATION
  Report Type: Spontaneous
  Country: JP (occurrence: JP)
  Receive Date: 20170223
  Receipt Date: 20170223
  Transmission Date: 20170428
  Serious: Yes (Death)
  Sender: FDA-Public Use
  Company Number: JP-BAYER-2017-035358

PATIENT
  Age: 80 Year
  Sex: Male

DRUGS (8)
  1. NEXAVAR [Suspect]
     Active Substance: SORAFENIB
     Indication: HEPATOCELLULAR CARCINOMA
     Dosage: 400 MG, QD
     Route: 048
     Dates: start: 20170120
  2. BAYASPIRIN [Concomitant]
     Active Substance: ASPIRIN
     Route: 048
  3. BONALON [Concomitant]
     Active Substance: ALENDRONATE SODIUM
  4. PREDONINE [Concomitant]
     Active Substance: PREDNISOLONE
  5. SIGMART [Concomitant]
     Active Substance: NICORANDIL
  6. PROGRAF [Concomitant]
     Active Substance: TACROLIMUS\TACROLIMUS ANHYDROUS
  7. CYTOTEC [Concomitant]
     Active Substance: MISOPROSTOL
     Dosage: UNK
     Route: 048
  8. ANPLAG [Concomitant]
     Active Substance: SARPOGRELATE
     Route: 048

REACTIONS (1)
  - Hepatocellular carcinoma [Fatal]
